FAERS Safety Report 25823623 (Version 3)
Quarter: 2025Q3

REPORT INFORMATION
  Report Type: Report from Study
  Country: US (occurrence: US)
  Receive Date: 20250919
  Receipt Date: 20250929
  Transmission Date: 20251020
  Serious: Yes (Death, Other)
  Sender: ACADIA PHARMACEUTICALS
  Company Number: US-ACADIA PHARMACEUTICALS INC.-ACA-2025-PIM-010396

PATIENT
  Age: 88 Year
  Sex: Female

DRUGS (6)
  1. NUPLAZID [Suspect]
     Active Substance: PIMAVANSERIN TARTRATE
     Indication: Parkinson^s disease psychosis
     Dosage: 34 MILLIGRAM, QD
     Route: 048
     Dates: start: 20240220, end: 20250611
  2. XANAX [Concomitant]
     Active Substance: ALPRAZOLAM
     Dosage: 0.125 MILLIGRAM, QD + 0.5 MH QHS
     Route: 048
  3. XANAX [Concomitant]
     Active Substance: ALPRAZOLAM
  4. SINEMET [Concomitant]
     Active Substance: CARBIDOPA\LEVODOPA
  5. REMENDA [Concomitant]
     Route: 048
  6. MELATONIN [Concomitant]
     Active Substance: MELATONIN

REACTIONS (2)
  - Adult failure to thrive [Fatal]
  - Dysphagia [Fatal]

NARRATIVE: CASE EVENT DATE: 20250101
